FAERS Safety Report 6915626-0 (Version None)
Quarter: 2010Q3

REPORT INFORMATION
  Report Type: 
  Country: None (occurrence: None)
  Receive Date: 20100810
  Receipt Date: 20100803
  Transmission Date: 20110219
  Serious: Yes (Hospitalization)
  Sender: FDA-Public Use
  Company Number: JP-SHIRE-SPV1-2010-01292

PATIENT

DRUGS (10)
  1. FOSRENOL [Suspect]
     Indication: HYPERPHOSPHATAEMIA
     Route: 048
     Dates: start: 20100118, end: 20100711
  2. FOSRENOL [Suspect]
     Route: 048
     Dates: start: 20091028
  3. FOSRENOL [Suspect]
     Route: 048
     Dates: start: 20091209
  4. BASEN [Suspect]
     Indication: DIABETES MELLITUS
     Dosage: .9 MG, UNK
     Route: 048
     Dates: start: 20081126
  5. INSULIN [Concomitant]
     Indication: DIABETES MELLITUS
     Route: 058
     Dates: start: 20050101
  6. NORVASC [Concomitant]
     Indication: HYPERTENSION
     Dosage: 10 MG, UNK
     Route: 048
     Dates: start: 20080701
  7. ROCALTROL [Concomitant]
     Indication: OSTEOPOROSIS
     Dosage: .25 UG, UNK
     Route: 048
     Dates: start: 20080701
  8. DOXAZOSIN MESYLATE [Concomitant]
     Indication: HYPERTENSION
     Dosage: 1 MG, UNK
     Route: 048
     Dates: start: 20080701
  9. ACECOL [Concomitant]
     Indication: HYPERTENSION
     Dosage: 2 MG, UNK
     Dates: start: 20080101
  10. LANTUS                             /01483501/ [Concomitant]
     Route: 058
     Dates: start: 20081101

REACTIONS (1)
  - ILEUS [None]
